FAERS Safety Report 5949720-8 (Version None)
Quarter: 2008Q4

REPORT INFORMATION
  Report Type: 
  Country: None (occurrence: None)
  Receive Date: 20081112
  Receipt Date: 20081031
  Transmission Date: 20090506
  Serious: Yes (Hospitalization)
  Sender: FDA-Public Use
  Company Number: US-JNJFOC-20081100816

PATIENT
  Sex: Male

DRUGS (2)
  1. REMICADE [Suspect]
     Dosage: 2 INFUSIONS
     Route: 042
  2. REMICADE [Suspect]
     Indication: RHEUMATOID ARTHRITIS
     Route: 042

REACTIONS (4)
  - ADVERSE DRUG REACTION [None]
  - DYSPNOEA [None]
  - HOSPITALISATION [None]
  - MUSCULAR WEAKNESS [None]
